FAERS Safety Report 11800717 (Version 2)
Quarter: 2015Q4

REPORT INFORMATION
  Report Type: Spontaneous
  Country: DE (occurrence: DE)
  Receive Date: 20151204
  Receipt Date: 20151209
  Transmission Date: 20160305
  Serious: Yes (Other)
  Sender: FDA-Public Use
  Company Number: GXKR2015DE005311

PATIENT
  Age: 39 Year
  Sex: Female
  Weight: 59 kg

DRUGS (1)
  1. IBUHEXAL [Suspect]
     Active Substance: IBUPROFEN
     Indication: RHEUMATOID ARTHRITIS
     Dosage: UP TO 1600 MG PER DAY
     Route: 048
     Dates: start: 2010, end: 201510

REACTIONS (2)
  - Anovulatory cycle [Not Recovered/Not Resolved]
  - Infertility [Not Recovered/Not Resolved]

NARRATIVE: CASE EVENT DATE: 201504
